FAERS Safety Report 12791646 (Version 2)
Quarter: 2016Q4

REPORT INFORMATION
  Report Type: Spontaneous
  Country: CA (occurrence: CA)
  Receive Date: 20160929
  Receipt Date: 20161005
  Transmission Date: 20170207
  Serious: Yes (Other)
  Sender: FDA-Public Use
  Company Number: CA-BEH-2016073618

PATIENT
  Age: 88 Year
  Sex: Female

DRUGS (3)
  1. ALBUREX [Suspect]
     Active Substance: ALBUMIN HUMAN
     Indication: GENERALISED OEDEMA
     Dosage: 1 VIAL
     Route: 065
     Dates: start: 20160321, end: 20160321
  2. ALBUREX [Suspect]
     Active Substance: ALBUMIN HUMAN
     Indication: CHRONIC KIDNEY DISEASE
  3. ALBUREX [Suspect]
     Active Substance: ALBUMIN HUMAN
     Indication: ACUTE KIDNEY INJURY

REACTIONS (9)
  - Oxygen saturation decreased [Recovered/Resolved]
  - Pleural effusion [Recovered/Resolved]
  - Cyanosis [Recovered/Resolved]
  - Hypertension [Recovered/Resolved]
  - Fluid overload [Recovered/Resolved]
  - Dyspnoea [Recovered/Resolved]
  - Rales [Recovered/Resolved]
  - Respiratory rate increased [Recovered/Resolved]
  - Skin discolouration [Recovered/Resolved]

NARRATIVE: CASE EVENT DATE: 20160321
